FAERS Safety Report 5950791-3 (Version None)
Quarter: 2008Q4

REPORT INFORMATION
  Report Type: 
  Country: None (occurrence: None)
  Receive Date: 20081112
  Receipt Date: 20081105
  Transmission Date: 20090506
  Serious: Yes (Life-Threatening)
  Sender: FDA-Public Use
  Company Number: FR-B.I. PHARMACEUTICALS,INC./RIDGEFIELD-2008-DE-06498BY

PATIENT
  Sex: Female

DRUGS (5)
  1. PRITOR [Suspect]
     Dosage: 80MG
     Route: 048
     Dates: end: 20070301
  2. GLUCOPHAGE [Suspect]
     Indication: TYPE 2 DIABETES MELLITUS
     Dosage: 3G
     Route: 048
     Dates: end: 20070303
  3. ALDALIX [Suspect]
     Route: 048
     Dates: end: 20070301
  4. ACTOS [Concomitant]
     Route: 048
  5. TAHOR [Concomitant]
     Dosage: 10MG
     Route: 048

REACTIONS (4)
  - CARDIAC ARREST [None]
  - COMA [None]
  - LACTIC ACIDOSIS [None]
  - RENAL FAILURE ACUTE [None]
